FAERS Safety Report 18920511 (Version 1)
Quarter: 2021Q1

REPORT INFORMATION
  Report Type: Report from Study
  Country: US (occurrence: US)
  Receive Date: 20210222
  Receipt Date: 20210222
  Transmission Date: 20210420
  Serious: Yes (Hospitalization)
  Sender: FDA-Public Use
  Company Number: US-ROCHE-2766357

PATIENT
  Age: 68 Year
  Sex: Female
  Weight: 79.9 kg

DRUGS (14)
  1. COBIMETINIB. [Suspect]
     Active Substance: COBIMETINIB
     Indication: NON-SMALL CELL LUNG CANCER
     Dosage: ON 21/JAN/2021, SHE RECEIVED MOST RECENT DOSE OF COBIMETINIB PRIOR TO EVENT ONSET.
     Route: 048
     Dates: start: 20210106
  2. TYLENOL [Concomitant]
     Active Substance: ACETAMINOPHEN
  3. MS CONTIN [Concomitant]
     Active Substance: MORPHINE SULFATE
  4. ATORVASTATIN [Concomitant]
     Active Substance: ATORVASTATIN
     Route: 048
     Dates: start: 20201201
  5. OMEPRAZOLE. [Concomitant]
     Active Substance: OMEPRAZOLE
     Route: 048
     Dates: start: 20210106
  6. FERROUS SULFATE. [Concomitant]
     Active Substance: FERROUS SULFATE
  7. PREDNISONE. [Concomitant]
     Active Substance: PREDNISONE
  8. SENNA ALEXANDRINA [Concomitant]
     Active Substance: SENNA LEAF
  9. COLACE [Concomitant]
     Active Substance: DOCUSATE SODIUM
     Dates: start: 20201201
  10. PROCHLORPERAZINE. [Concomitant]
     Active Substance: PROCHLORPERAZINE
  11. SERTRALINE [Concomitant]
     Active Substance: SERTRALINE HYDROCHLORIDE
     Route: 048
  12. OXYCODONE [Concomitant]
     Active Substance: OXYCODONE
     Route: 048
     Dates: start: 20210106
  13. LACTULOSE. [Concomitant]
     Active Substance: LACTULOSE
  14. SULFAMETHOXAZOLE/TRIMETHOPRIM [Concomitant]
     Active Substance: SULFAMETHOXAZOLE\TRIMETHOPRIM

REACTIONS (1)
  - Pneumonia [Recovered/Resolved]

NARRATIVE: CASE EVENT DATE: 20210127
